FAERS Safety Report 22317670 (Version 2)
Quarter: 2023Q2

REPORT INFORMATION
  Report Type: Spontaneous
  Country: JP (occurrence: JP)
  Receive Date: 20230515
  Receipt Date: 20230628
  Transmission Date: 20230722
  Serious: Yes (Life-Threatening, Hospitalization, Other)
  Sender: FDA-Public Use
  Company Number: JP-TAKEDA-2023TJP005784

PATIENT
  Age: 42 Year
  Sex: Male
  Weight: 58.3 kg

DRUGS (4)
  1. AGRYLIN [Suspect]
     Active Substance: ANAGRELIDE HYDROCHLORIDE
     Indication: Essential thrombocythaemia
     Dosage: 1 DOSAGE FORM, BID
     Route: 048
     Dates: start: 20221109, end: 20230113
  2. AGRYLIN [Suspect]
     Active Substance: ANAGRELIDE HYDROCHLORIDE
     Dosage: 3 DOSAGE FORM
     Route: 048
     Dates: start: 20230114, end: 20230224
  3. AGRYLIN [Suspect]
     Active Substance: ANAGRELIDE HYDROCHLORIDE
     Dosage: 4 DOSAGE FORM
     Route: 048
     Dates: start: 20230225, end: 20230323
  4. AGRYLIN [Suspect]
     Active Substance: ANAGRELIDE HYDROCHLORIDE
     Dosage: 3 DOSAGE FORM
     Route: 048
     Dates: start: 20230324

REACTIONS (3)
  - Cardio-respiratory arrest [Unknown]
  - Prinzmetal angina [Unknown]
  - Myocardial infarction [Unknown]

NARRATIVE: CASE EVENT DATE: 20230420
